FAERS Safety Report 13776132 (Version 1)
Quarter: 2017Q3

REPORT INFORMATION
  Report Type: Spontaneous
  Country: TH (occurrence: TH)
  Receive Date: 20170721
  Receipt Date: 20170721
  Transmission Date: 20171127
  Serious: Yes (Other)
  Sender: FDA-Public Use
  Company Number: TH-FRESENIUS KABI-FK201706169

PATIENT

DRUGS (3)
  1. HEPARIN (MANUFACTURER UNKNOWN) [Suspect]
     Active Substance: HEPARIN SODIUM
     Route: 041
  2. WARFARIN [Concomitant]
     Active Substance: WARFARIN
     Indication: CEREBRAL VENOUS THROMBOSIS
     Route: 048
  3. HEPARIN (MANUFACTURER UNKNOWN) [Suspect]
     Active Substance: HEPARIN SODIUM
     Indication: CEREBRAL VENOUS THROMBOSIS
     Route: 040

REACTIONS (2)
  - Extradural haematoma [Unknown]
  - Subdural haematoma [Unknown]
